FAERS Safety Report 4568277-X (Version None)
Quarter: 2005Q1

REPORT INFORMATION
  Report Type: 
  Country: None (occurrence: None)
  Receive Date: 20050131
  Receipt Date: 20050124
  Transmission Date: 20050727
  Serious: No
  Sender: FDA-Public Use
  Company Number: 05H-078-0287933-00

PATIENT
  Age: 50 Year
  Sex: Female
  Weight: 60 kg

DRUGS (14)
  1. VECURONIUM BROMIDE [Suspect]
     Indication: INDUCTION OF ANAESTHESIA
     Dosage: 6 MG, INTRAVENOUS
     Route: 042
  2. DILTIAZEM [Suspect]
     Indication: SUPRAVENTRICULAR TACHYCARDIA
     Dosage: 30 MG, THREE TIMES DAILY, ORAL
     Route: 048
  3. VERAPAMIL [Suspect]
     Indication: SUPRAVENTRICULAR TACHYCARDIA
     Dosage: 40 MG, THREE TIMES DAILY, ORAL
     Route: 048
  4. ENALAPRIL MALEATE [Concomitant]
  5. MORPHINE [Concomitant]
  6. DIAZEPAM [Concomitant]
  7. THIOPENTAL SODIUM [Concomitant]
  8. LIDOCAINE HCL [Concomitant]
  9. ISOFLURANE [Concomitant]
  10. INTRAVENOUS FLUIDS [Concomitant]
  11. NEOSTIGMINE [Concomitant]
  12. ATROPINE [Concomitant]
  13. OXYGEN [Concomitant]
  14. NITROUS OXIDE [Concomitant]

REACTIONS (5)
  - DRUG INTERACTION POTENTIATION [None]
  - FLAIL CHEST [None]
  - NEUROMUSCULAR BLOCKADE [None]
  - PULMONARY OEDEMA [None]
  - THERAPY NON-RESPONDER [None]
